FAERS Safety Report 10735742 (Version 1)
Quarter: 2015Q1

REPORT INFORMATION
  Report Type: Report from Study
  Country: US (occurrence: US)
  Receive Date: 20150126
  Receipt Date: 20150126
  Transmission Date: 20150721
  Serious: Yes (Other)
  Sender: FDA-Public Use
  Company Number: US-BIOGENIDEC-2014BI109562

PATIENT
  Age: 38 Year
  Sex: Female

DRUGS (4)
  1. AVONEX [Suspect]
     Active Substance: INTERFERON BETA-1A
     Indication: MULTIPLE SCLEROSIS
     Route: 030
     Dates: start: 20141010
  2. AVONEX [Suspect]
     Active Substance: INTERFERON BETA-1A
     Indication: MULTIPLE SCLEROSIS
     Route: 030
     Dates: end: 20141027
  3. PROVIGIL [Concomitant]
     Active Substance: MODAFINIL
     Dates: start: 20141021
  4. INH [Concomitant]
     Active Substance: ISONIAZID
     Indication: EXPOSURE TO COMMUNICABLE DISEASE

REACTIONS (8)
  - Rash macular [Not Recovered/Not Resolved]
  - Rash generalised [Unknown]
  - Lip blister [Unknown]
  - Pruritus generalised [Unknown]
  - Depressed mood [Recovered/Resolved]
  - Urticaria [Recovered/Resolved]
  - Influenza like illness [Recovered/Resolved]
  - Drug-induced liver injury [Recovered/Resolved]

NARRATIVE: CASE EVENT DATE: 201410
